FAERS Safety Report 14877370 (Version 1)
Quarter: 2018Q2

REPORT INFORMATION
  Report Type: Spontaneous
  Country: IT (occurrence: IT)
  Receive Date: 20180510
  Receipt Date: 20180510
  Transmission Date: 20180711
  Serious: Yes (Hospitalization)
  Sender: FDA-Public Use
  Company Number: IT-ACELLA PHARMACEUTICALS, LLC-2047572

PATIENT
  Age: 19 Year
  Sex: Female

DRUGS (1)
  1. LEVONORGESTREL AND ETHINYL ESTRADIOL TABLETS AND FERROUS BISGLYCINATE [Suspect]
     Active Substance: ETHINYL ESTRADIOL\LEVONORGESTREL

REACTIONS (2)
  - Abdominal pain [Recovered/Resolved]
  - Pancreatitis acute [Recovered/Resolved]
